FAERS Safety Report 13199706 (Version 1)
Quarter: 2017Q1

REPORT INFORMATION
  Report Type: Spontaneous
  Country: GB (occurrence: GB)
  Receive Date: 20170208
  Receipt Date: 20170208
  Transmission Date: 20170428
  Serious: Yes (Other)
  Sender: FDA-Public Use
  Company Number: PHHY2017GB015643

PATIENT
  Sex: Female

DRUGS (1)
  1. AMOXICILLIN. [Suspect]
     Active Substance: AMOXICILLIN
     Indication: EAR INFECTION
     Route: 065
     Dates: start: 201609

REACTIONS (19)
  - Oesophageal pain [Not Recovered/Not Resolved]
  - Abdominal distension [Not Recovered/Not Resolved]
  - Weight decreased [Not Recovered/Not Resolved]
  - Oesophageal stenosis [Not Recovered/Not Resolved]
  - Confusional state [Unknown]
  - Muscular weakness [Unknown]
  - Dizziness [Recovering/Resolving]
  - Asthenia [Unknown]
  - Disturbance in attention [Unknown]
  - Fall [Unknown]
  - Chest pain [Unknown]
  - Hypophagia [Recovering/Resolving]
  - Stress [Unknown]
  - Musculoskeletal chest pain [Unknown]
  - Nervousness [Unknown]
  - Palpitations [Recovering/Resolving]
  - Psychomotor hyperactivity [Unknown]
  - Malaise [Unknown]
  - Influenza like illness [Unknown]

NARRATIVE: CASE EVENT DATE: 20161221
